FAERS Safety Report 22064586 (Version 1)
Quarter: 2023Q1

REPORT INFORMATION
  Report Type: Spontaneous
  Country: CN (occurrence: CN)
  Receive Date: 20230306
  Receipt Date: 20230306
  Transmission Date: 20230418
  Serious: Yes (Other)
  Sender: FDA-Public Use
  Company Number: CN-BAYER-2023A027286

PATIENT
  Age: 69 Year
  Sex: Female

DRUGS (1)
  1. ULTRAVIST [Suspect]
     Active Substance: IOPROMIDE
     Indication: Angiocardiogram
     Dosage: 100 ML, ONCE
     Route: 042
     Dates: start: 20230227, end: 20230227

REACTIONS (4)
  - Delirium [Recovering/Resolving]
  - Muscle twitching [Recovering/Resolving]
  - Leukodystrophy [None]
  - Patient uncooperative [Recovering/Resolving]

NARRATIVE: CASE EVENT DATE: 20230227
